FAERS Safety Report 6365191-4 (Version None)
Quarter: 2009Q3

REPORT INFORMATION
  Report Type: 
  Country: None (occurrence: None)
  Receive Date: 20090919
  Receipt Date: 20090805
  Transmission Date: 20100115
  Serious: No
  Sender: FDA-Public Use
  Company Number: US-ABBOTT-09P-163-0590122-00

PATIENT
  Sex: Female

DRUGS (10)
  1. HUMIRA [Suspect]
     Indication: RHEUMATOID ARTHRITIS
     Dosage: DOSNT HAVE LOT OR EXP INFORMATION
     Route: 058
     Dates: start: 20090707
  2. HUMIRA [Suspect]
     Indication: OSTEOARTHRITIS
  3. NAPROXSYN [Concomitant]
     Indication: OSTEOARTHRITIS
  4. NAPROXSYN [Concomitant]
     Indication: RHEUMATOID ARTHRITIS
  5. METHYLPREDNISOLONE [Concomitant]
     Indication: OSTEOARTHRITIS
     Dosage: UNKNOWN
     Route: 065
  6. METHYLPREDNISOLONE [Concomitant]
     Indication: RHEUMATOID ARTHRITIS
  7. FOLIC ACID [Concomitant]
     Indication: OSTEOARTHRITIS
     Dosage: UNKNOWN
  8. FOLIC ACID [Concomitant]
     Indication: RHEUMATOID ARTHRITIS
  9. METHOTREXATE [Concomitant]
     Indication: OSTEOARTHRITIS
     Dosage: UNKNOWN
  10. METHOTREXATE [Concomitant]
     Indication: RHEUMATOID ARTHRITIS

REACTIONS (1)
  - DRUG DOSE OMISSION [None]
